FAERS Safety Report 10674544 (Version 1)
Quarter: 2014Q4

REPORT INFORMATION
  Report Type: Spontaneous
  Country: US (occurrence: None)
  Receive Date: 20141210
  Receipt Date: 20141210
  Transmission Date: 20150529
  Serious: Yes (Hospitalization)
  Sender: FDA-Public Use
  Company Number: 20131031CINRY5316

PATIENT
  Age: 31 Year
  Sex: Female

DRUGS (1)
  1. CINRYZE [Suspect]
     Active Substance: HUMAN C1-ESTERASE INHIBITOR
     Indication: HEREDITARY ANGIOEDEMA
     Dosage: 1500 U, OTHER
     Route: 042

REACTIONS (9)
  - Off label use [None]
  - Inappropriate schedule of drug administration [None]
  - Hereditary angioedema [None]
  - Bone pain [None]
  - Wrong technique in drug usage process [None]
  - Incorrect dose administered [None]
  - Incorrect drug administration duration [None]
  - Therapy change [None]
  - Urticaria [None]
